FAERS Safety Report 11776834 (Version 1)
Quarter: 2015Q4

REPORT INFORMATION
  Report Type: Spontaneous
  Country: US (occurrence: None)
  Receive Date: 20151123
  Receipt Date: 20151123
  Transmission Date: 20160304
  Serious: Yes (Hospitalization)
  Sender: FDA-Public Use
  Company Number: None

PATIENT
  Age: 18 Year
  Sex: Female
  Weight: 59.42 kg

DRUGS (1)
  1. DEPO-PROVERA [Suspect]
     Active Substance: MEDROXYPROGESTERONE ACETATE
     Indication: CONTRACEPTION
     Dosage: 1 VIAL ?EVERY 11-13 WEEKS?
     Route: 030
     Dates: start: 20151120, end: 20151120

REACTIONS (5)
  - Erythema [None]
  - Pruritus [None]
  - Paraesthesia [None]
  - Feeling hot [None]
  - Administration site bruise [None]

NARRATIVE: CASE EVENT DATE: 20151120
